FAERS Safety Report 18612556 (Version 1)
Quarter: 2020Q4

REPORT INFORMATION
  Report Type: Spontaneous
  Country: US (occurrence: US)
  Receive Date: 20201214
  Receipt Date: 20201214
  Transmission Date: 20210114
  Serious: Yes (Other)
  Sender: FDA-Public Use
  Company Number: US-LANNETT COMPANY, INC.-US-2020LAN000317

PATIENT
  Sex: Female
  Weight: 80.73 kg

DRUGS (10)
  1. METHOTREXATE. [Concomitant]
     Active Substance: METHOTREXATE
     Indication: PSORIASIS
     Dosage: 20 MG, QIW
     Route: 065
     Dates: start: 20200222
  2. CORTICOSTEROIDS, TOPICAL [Concomitant]
  3. LEVOTHYROXINE SODIUM. [Suspect]
     Active Substance: LEVOTHYROXINE SODIUM
     Indication: AUTOIMMUNE THYROIDITIS
     Dosage: 112 ?G, UNK
     Route: 065
     Dates: start: 2005
  4. VITAMIN D                          /00107901/ [Concomitant]
     Active Substance: ERGOCALCIFEROL
     Indication: VITAMIN D DEFICIENCY
     Dosage: 50000 IU, QIW
     Route: 065
     Dates: start: 20200316
  5. SILIQ [Concomitant]
     Active Substance: BRODALUMAB
     Indication: PSORIASIS
     Dosage: 210 MG, ONCE EVERY TWO WEEKS
     Route: 065
     Dates: start: 20200508, end: 20200603
  6. COSENTYX [Suspect]
     Active Substance: SECUKINUMAB
     Indication: PSORIASIS
     Dosage: 300 MG, ONCE A MONTH
     Route: 065
     Dates: start: 20191204, end: 20200506
  7. COSENTYX [Suspect]
     Active Substance: SECUKINUMAB
     Dosage: UNK
     Route: 065
     Dates: start: 20200731
  8. LEVOTHYROXINE SODIUM. [Suspect]
     Active Substance: LEVOTHYROXINE SODIUM
     Dosage: 100 ?G, QD
     Route: 065
     Dates: start: 20201116
  9. COSENTYX [Suspect]
     Active Substance: SECUKINUMAB
     Dosage: 300 MG, Q3WEEKS
     Route: 065
     Dates: start: 20200703, end: 20200731
  10. DULOXETINE. [Concomitant]
     Active Substance: DULOXETINE
     Indication: PSORIATIC ARTHROPATHY
     Dosage: UNK
     Route: 065
     Dates: start: 20200624, end: 20200916

REACTIONS (3)
  - Autoimmune thyroiditis [Recovering/Resolving]
  - Weight decreased [Recovered/Resolved]
  - Condition aggravated [Recovering/Resolving]

NARRATIVE: CASE EVENT DATE: 202003
